FAERS Safety Report 5929659-4 (Version None)
Quarter: 2008Q4

REPORT INFORMATION
  Report Type: 
  Country: None (occurrence: None)
  Receive Date: 20081024
  Receipt Date: 20081020
  Transmission Date: 20090506
  Serious: Yes (Hospitalization, Other)
  Sender: FDA-Public Use
  Company Number: FR-BRISTOL-MYERS SQUIBB COMPANY-14377246

PATIENT
  Age: 37 Year
  Sex: Male

DRUGS (2)
  1. IRBESARTAN [Suspect]
     Indication: HYPERTENSION
     Dosage: 1 DF=1 TAB
     Route: 048
  2. ESIDRIX [Suspect]
     Indication: HYPERTENSION
     Dosage: 1 DOSAGEFORM = 1 TAB
     Route: 048
     Dates: end: 20080915

REACTIONS (7)
  - FOOD POISONING [None]
  - HYPOKALAEMIA [None]
  - HYPONATRAEMIA [None]
  - HYPOTENSION [None]
  - LOSS OF CONSCIOUSNESS [None]
  - MALAISE [None]
  - RENAL FAILURE ACUTE [None]
